FAERS Safety Report 9717468 (Version 2)
Quarter: 2015Q3

REPORT INFORMATION
  Report Type: Spontaneous
  Country: US (occurrence: US)
  Receive Date: 20131127
  Receipt Date: 20150803
  Transmission Date: 20151125
  Serious: Yes (Other)
  Sender: FDA-Public Use
  Company Number: US-GILEAD-2009-0019736

PATIENT
  Age: 58 Year
  Sex: Male

DRUGS (10)
  1. REVATIO [Concomitant]
     Active Substance: SILDENAFIL CITRATE
  2. KCL [Concomitant]
     Active Substance: POTASSIUM CHLORIDE
  3. COREG [Concomitant]
     Active Substance: CARVEDILOL
  4. LASIX [Concomitant]
     Active Substance: FUROSEMIDE
  5. WARFARIN [Concomitant]
     Active Substance: WARFARIN
  6. LANOXIN [Concomitant]
     Active Substance: DIGOXIN
  7. LETAIRIS [Suspect]
     Active Substance: AMBRISENTAN
     Route: 048
     Dates: start: 20081217
  8. ADVAIR 100/50 [Concomitant]
  9. CELEBREX [Concomitant]
     Active Substance: CELECOXIB
  10. LETAIRIS [Suspect]
     Active Substance: AMBRISENTAN
     Route: 048
     Dates: start: 20080926, end: 20081216

REACTIONS (1)
  - Oedema peripheral [Not Recovered/Not Resolved]
